FAERS Safety Report 7525300-8 (Version None)
Quarter: 2011Q2

REPORT INFORMATION
  Report Type: 
  Country: None (occurrence: None)
  Receive Date: 20110526
  Receipt Date: 20110511
  Transmission Date: 20111010
  Serious: Yes (Other)
  Sender: FDA-Public Use
  Company Number: AUR-APL-2011-01723

PATIENT
  Sex: Female

DRUGS (2)
  1. TERBINAFINE HCL [Suspect]
     Indication: FUNGAL INFECTION
  2. IMPLANON [Suspect]
     Indication: CONTRACEPTION
     Dosage: 68 MG, SUBDERMAL
     Route: 059

REACTIONS (5)
  - FUNGAL INFECTION [None]
  - PREGNANCY WITH IMPLANT CONTRACEPTIVE [None]
  - DRUG EXPOSURE DURING PREGNANCY [None]
  - ABORTION INDUCED [None]
  - DRUG INTERACTION [None]
